FAERS Safety Report 7434784-5 (Version None)
Quarter: 2011Q2

REPORT INFORMATION
  Report Type: 
  Country: None (occurrence: None)
  Receive Date: 20110425
  Receipt Date: 20110424
  Transmission Date: 20111010
  Serious: Yes (Other)
  Sender: FDA-Public Use
  Company Number: US-PFIZER INC-2011088282

PATIENT
  Sex: Female
  Weight: 120 kg

DRUGS (10)
  1. CHANTIX [Suspect]
     Dosage: UNK
     Route: 048
     Dates: start: 20110101, end: 20110424
  2. LORTAB [Suspect]
     Indication: BONE PAIN
     Dosage: [HYDROCODONE BITARTRATE] 10 MG/[PARACETAMOL] 325 MG, EVERY 6 HOURS
     Route: 048
  3. CHANTIX [Suspect]
     Indication: SMOKING CESSATION THERAPY
     Dosage: 0.5 MG, DAILY
     Route: 048
     Dates: start: 20110301, end: 20110101
  4. NEXIUM [Concomitant]
     Indication: PROPHYLAXIS
     Dosage: UNK
     Route: 048
  5. PAXIL [Concomitant]
     Indication: DEPRESSION
     Dosage: 20 MG, DAILY
     Route: 048
     Dates: start: 20110401
  6. SEROQUEL [Suspect]
     Indication: DEPRESSION
     Dosage: 50 MG, DAILY
     Route: 048
     Dates: end: 20110301
  7. TRIAMTERENE AND HYDROCHLOROTHIAZIDE [Concomitant]
     Indication: BLOOD PRESSURE ABNORMAL
     Dosage: [HYDROCHLOROTHIAZIDE] 25 MG / [TRIAMTERENE] 37.5 MG, DAILY
  8. LISINOPRIL [Concomitant]
     Indication: BLOOD PRESSURE ABNORMAL
     Dosage: 20 MG, DAILY
  9. MULTI-VITAMINS [Concomitant]
     Dosage: UNK
  10. SEROQUEL XR [Suspect]
     Indication: DEPRESSION
     Dosage: 150 MG, DAILY
     Route: 048
     Dates: start: 20110301

REACTIONS (7)
  - GINGIVAL INFECTION [None]
  - NERVOUSNESS [None]
  - DRUG INEFFECTIVE [None]
  - MEMORY IMPAIRMENT [None]
  - AGITATION [None]
  - PANIC DISORDER [None]
  - INSOMNIA [None]
